FAERS Safety Report 10388802 (Version 1)
Quarter: 2014Q1

REPORT INFORMATION
  Report Type: Spontaneous
  Country: US (occurrence: None)
  Receive Date: 20140306
  Receipt Date: 20140306
  Transmission Date: 20141002
  Serious: Yes (Hospitalization, Other)
  Sender: FDA-Public Use
  Company Number: 163-21880-13070217

PATIENT
  Age: 78 Year
  Sex: Female

DRUGS (22)
  1. REVLIMID (LENALIDOMIDE) (10 MILLIGRAM, CAPSULES) [Suspect]
     Indication: PLASMA CELL MYELOMA
     Route: 048
     Dates: start: 20130601, end: 20130710
  2. VELCADE (BORTEZOMIB) [Suspect]
     Indication: PRODUCT USED FOR UNKNOWN INDICATION
     Route: 042
  3. HUMALOG (INSULIN LISPRO) [Concomitant]
  4. ROPINIROLE HCL (ROPINIROLE HYDROCHLORIDE) (TABLETS) [Concomitant]
  5. LOSARTAN POTSSIUM (LOSARTAN POTASSIUM) (TABLETS) [Concomitant]
  6. GABAPENTIN (GABAPENTIN) (TABLETS) [Concomitant]
  7. LANTUS (INSULIN GLARGINE) (INJECTION) [Concomitant]
  8. LORAZEPAM (LORAZEPAM) (TABLETS) [Concomitant]
  9. KLOR-CON (POTASSIUM CHLORIDE) (TABLETS) [Concomitant]
  10. OMEPRAZOLE (OMEPRAZOLE) (TABLETS) [Concomitant]
  11. DEXAMETHASONE (DEXAMETHASONE) [Concomitant]
  12. LOVASTATIN (HYDROCHLOROTHIAZIDE (OTHER THERAPEUTIC PRODUCTS) [Concomitant]
  13. LIPITOR (ATORVASTATIN) [Concomitant]
  14. POTASSIUM CHLORIDE (POTASSIUM CHLORIDE) [Concomitant]
  15. ATIVAN (LORAZEPAM) [Concomitant]
  16. NEURONTIN (GABAPENTIN) [Concomitant]
  17. ZOMETA (ZOLEDRONIC ACID) [Concomitant]
  18. FLEXERIL (CYCLOBENZAPRINE HYDROCHLORIDE) [Concomitant]
  19. LEVOTHYROXINE (LEVOTHYROXINE) [Concomitant]
  20. LOPRESSOR (METOPROLOL TARTRATE) [Concomitant]
  21. PROCHLORPERAZINE [Concomitant]
  22. PRILOSEC (OMEPRAZOLE) [Concomitant]

REACTIONS (4)
  - Neuropathy peripheral [None]
  - Syncope [None]
  - Dizziness [None]
  - Hypokalaemia [None]
